FAERS Safety Report 23328736 (Version 1)
Quarter: 2023Q4

REPORT INFORMATION
  Report Type: Report from Study
  Country: JP (occurrence: JP)
  Receive Date: 20231221
  Receipt Date: 20231221
  Transmission Date: 20240110
  Serious: Yes (Other)
  Sender: FDA-Public Use
  Company Number: JP-TAKEDA-2022TUS037962

PATIENT
  Age: 9 Year
  Sex: Male
  Weight: 31.8 kg

DRUGS (22)
  1. LISDEXAMFETAMINE DIMESYLATE [Suspect]
     Active Substance: LISDEXAMFETAMINE DIMESYLATE
     Indication: Attention deficit hyperactivity disorder
     Dosage: 30 MILLIGRAM, QD
     Route: 048
     Dates: start: 20211105, end: 20211118
  2. LISDEXAMFETAMINE DIMESYLATE [Suspect]
     Active Substance: LISDEXAMFETAMINE DIMESYLATE
     Dosage: 50 MILLIGRAM, QD
     Route: 048
     Dates: start: 20211119, end: 20220209
  3. LISDEXAMFETAMINE DIMESYLATE [Suspect]
     Active Substance: LISDEXAMFETAMINE DIMESYLATE
     Dosage: 40 MILLIGRAM, QD
     Route: 048
     Dates: start: 20220210, end: 20220427
  4. LISDEXAMFETAMINE DIMESYLATE [Suspect]
     Active Substance: LISDEXAMFETAMINE DIMESYLATE
     Dosage: 50 MILLIGRAM, QD
     Route: 048
     Dates: start: 20220428, end: 20230313
  5. LISDEXAMFETAMINE DIMESYLATE [Suspect]
     Active Substance: LISDEXAMFETAMINE DIMESYLATE
     Dosage: 60 MILLIGRAM, QD
     Route: 048
     Dates: start: 20230314
  6. INTUNIV [Concomitant]
     Active Substance: GUANFACINE HYDROCHLORIDE
     Indication: Attention deficit hyperactivity disorder
     Dosage: 0.25 MILLIGRAM
     Route: 065
     Dates: start: 20220113, end: 20220209
  7. INTUNIV [Concomitant]
     Active Substance: GUANFACINE HYDROCHLORIDE
     Dosage: 1 MILLIGRAM
     Route: 065
     Dates: start: 20220210, end: 20220309
  8. INTUNIV [Concomitant]
     Active Substance: GUANFACINE HYDROCHLORIDE
     Dosage: 1.5 MILLIGRAM
     Route: 065
     Dates: start: 20220310, end: 20220711
  9. RISPERIDONE [Concomitant]
     Active Substance: RISPERIDONE
     Dosage: 1 MILLIGRAM
     Route: 065
     Dates: end: 20211226
  10. RISPERIDONE [Concomitant]
     Active Substance: RISPERIDONE
     Dosage: 1.5 MILLIGRAM
     Route: 065
     Dates: start: 20211227, end: 20220112
  11. RISPERIDONE [Concomitant]
     Active Substance: RISPERIDONE
     Dosage: 1 MILLIGRAM
     Route: 065
     Dates: start: 20220113, end: 20221002
  12. RISPERIDONE [Concomitant]
     Active Substance: RISPERIDONE
     Dosage: 2 MILLIGRAM
     Route: 065
     Dates: start: 20221003, end: 20221128
  13. RISPERIDONE [Concomitant]
     Active Substance: RISPERIDONE
     Dosage: 2.5 MILLIGRAM
     Route: 065
     Dates: start: 20221128, end: 20230122
  14. RISPERIDONE [Concomitant]
     Active Substance: RISPERIDONE
     Dosage: 3 MILLIGRAM
     Route: 065
     Dates: start: 20230123
  15. MELATOBEL [Concomitant]
     Indication: Insomnia
     Dosage: 1 MILLIGRAM
     Route: 065
     Dates: end: 20220309
  16. MELATOBEL [Concomitant]
     Dosage: 1.5 MILLIGRAM
     Route: 065
     Dates: start: 20220310, end: 20220626
  17. MELATOBEL [Concomitant]
     Dosage: 2 MILLIGRAM
     Route: 065
     Dates: start: 20220627, end: 20230702
  18. MELATOBEL [Concomitant]
     Dosage: 3 MILLIGRAM
     Route: 065
     Dates: start: 20230703
  19. LEXAPRO [Concomitant]
     Active Substance: ESCITALOPRAM OXALATE
     Dosage: 0.25 MILLIGRAM
     Route: 065
     Dates: start: 20231002
  20. LITHIUM CARBONATE [Concomitant]
     Active Substance: LITHIUM CARBONATE
     Dosage: 100 MILLIGRAM
     Route: 065
     Dates: start: 20230605, end: 20230702
  21. LITHIUM CARBONATE [Concomitant]
     Active Substance: LITHIUM CARBONATE
     Dosage: 200 MILLIGRAM
     Route: 065
     Dates: start: 20230703, end: 20230730
  22. LITHIUM CARBONATE [Concomitant]
     Active Substance: LITHIUM CARBONATE
     Dosage: 400 MILLIGRAM
     Route: 065
     Dates: start: 20230731

REACTIONS (4)
  - Autism spectrum disorder [Recovering/Resolving]
  - Tic [Recovered/Resolved]
  - Insomnia [Recovering/Resolving]
  - Insomnia [Recovering/Resolving]

NARRATIVE: CASE EVENT DATE: 20220201
